FAERS Safety Report 18831963 (Version 2)
Quarter: 2021Q1

REPORT INFORMATION
  Report Type: Spontaneous
  Country: US (occurrence: US)
  Receive Date: 20210203
  Receipt Date: 20210303
  Transmission Date: 20210419
  Serious: Yes (Other)
  Sender: FDA-Public Use
  Company Number: US-PFIZER INC-2021080961

PATIENT
  Age: 92 Year

DRUGS (1)
  1. ZOLOFT [Suspect]
     Active Substance: SERTRALINE HYDROCHLORIDE
     Indication: ANXIETY
     Dosage: 50 MG
     Route: 048
     Dates: start: 1998

REACTIONS (3)
  - Therapeutic product effect delayed [Unknown]
  - Intraocular pressure increased [Unknown]
  - Macular degeneration [Unknown]

NARRATIVE: CASE EVENT DATE: 2020
